FAERS Safety Report 6067863-8 (Version None)
Quarter: 2009Q1

REPORT INFORMATION
  Report Type: 
  Country: None (occurrence: None)
  Receive Date: 20090203
  Receipt Date: 20090118
  Transmission Date: 20090719
  Serious: Yes (Death)
  Sender: FDA-Public Use
  Company Number: 08-189

PATIENT
  Age: 32 Year
  Sex: Male

DRUGS (2)
  1. CLOZARIL [Suspect]
     Indication: DEVELOPMENTAL DELAY
     Dosage: 100 MG BID; PO
     Route: 048
     Dates: start: 20070521, end: 20080101
  2. CLOZARIL [Suspect]
     Indication: INTERMITTENT EXPLOSIVE DISORDER
     Dosage: 100 MG BID; PO
     Route: 048
     Dates: start: 20070521, end: 20080101

REACTIONS (1)
  - DEATH [None]
